FAERS Safety Report 6062335-9 (Version None)
Quarter: 2009Q1

REPORT INFORMATION
  Report Type: 
  Country: None (occurrence: None)
  Receive Date: 20090129
  Receipt Date: 20090122
  Transmission Date: 20090719
  Serious: No
  Sender: FDA-Public Use
  Company Number: MSTR-NO-0807S-0035

PATIENT
  Sex: Female
  Weight: 48 kg

DRUGS (1)
  1. METASTRON [Suspect]
     Indication: METASTATIC PAIN
     Dosage: NR, SINGLE DOSE, I.V.
     Route: 042
     Dates: start: 20080612, end: 20080612

REACTIONS (5)
  - ANORECTAL DISORDER [None]
  - BLADDER DISORDER [None]
  - DISEASE PROGRESSION [None]
  - HEMIPARESIS [None]
  - RESPIRATORY FAILURE [None]
